FAERS Safety Report 25488049 (Version 1)
Quarter: 2025Q2

REPORT INFORMATION
  Report Type: Spontaneous
  Country: US (occurrence: US)
  Receive Date: 20250627
  Receipt Date: 20250627
  Transmission Date: 20250717
  Serious: Yes (Hospitalization)
  Sender: AMGEN
  Company Number: US-AMGEN-USASP2025122401

PATIENT
  Age: 78 Year
  Sex: Female

DRUGS (2)
  1. TARLATAMAB [Suspect]
     Active Substance: TARLATAMAB
     Indication: Large cell lung cancer metastatic
     Route: 065
     Dates: start: 202411
  2. TARLATAMAB [Suspect]
     Active Substance: TARLATAMAB
     Indication: Off label use

REACTIONS (3)
  - Cytokine release syndrome [Recovered/Resolved]
  - Therapy partial responder [Unknown]
  - Off label use [Unknown]
